FAERS Safety Report 17173837 (Version 1)
Quarter: 2019Q4

REPORT INFORMATION
  Report Type: Spontaneous
  Country: US (occurrence: US)
  Receive Date: 20191219
  Receipt Date: 20191219
  Transmission Date: 20200122
  Serious: No
  Sender: FDA-Public Use
  Company Number: US-PFIZER INC-2019541338

PATIENT
  Age: 9 Year
  Sex: Female
  Weight: 36.28 kg

DRUGS (1)
  1. JUNIOR STRENGTH ADVIL [Suspect]
     Active Substance: IBUPROFEN
     Indication: INFLUENZA
     Dosage: 100 MG, UNK

REACTIONS (1)
  - Throat irritation [Unknown]
